FAERS Safety Report 10185730 (Version 2)
Quarter: 2014Q2

REPORT INFORMATION
  Report Type: Spontaneous
  Country: US (occurrence: US)
  Receive Date: 20140521
  Receipt Date: 20140617
  Transmission Date: 20141212
  Serious: No
  Sender: FDA-Public Use
  Company Number: US-009507513-1405USA010603

PATIENT
  Age: 7 Year
  Sex: Female

DRUGS (2)
  1. COPPERTONE SPORT LOTION SPF 50 [Suspect]
     Indication: PRODUCT USED FOR UNKNOWN INDICATION
     Dosage: UNK, UNKNOWN
     Route: 061
     Dates: start: 20140502
  2. COPPERTONE SPORT LOTION SPF 50 [Suspect]
     Dosage: UNK, UNKNOWN
     Route: 061
     Dates: start: 20140502

REACTIONS (1)
  - Rash [Recovered/Resolved]
